FAERS Safety Report 6308823-9 (Version None)
Quarter: 2009Q3

REPORT INFORMATION
  Report Type: 
  Country: None (occurrence: None)
  Receive Date: 20090813
  Receipt Date: 20080721
  Transmission Date: 20100115
  Serious: No
  Sender: FDA-Public Use
  Company Number: US-ALLERGAN-0808950US

PATIENT
  Age: 64 Year
  Sex: Female

DRUGS (2)
  1. COMBIGAN [Suspect]
     Indication: GLAUCOMA
     Dosage: UNK, UNK
  2. FOSAMAX [Concomitant]

REACTIONS (2)
  - ECZEMA [None]
  - HYPERKERATOSIS [None]
